FAERS Safety Report 11272255 (Version 1)
Quarter: 2015Q2

REPORT INFORMATION
  Report Type: Spontaneous
  Country: US (occurrence: None)
  Receive Date: 20150625
  Receipt Date: 20150625
  Transmission Date: 20150821
  Serious: No
  Sender: FDA-Public Use
  Company Number: A-US2014-110238

PATIENT
  Age: 79 Year
  Sex: Male

DRUGS (12)
  1. SERTRALINE [Concomitant]
     Active Substance: SERTRALINE HYDROCHLORIDE
  2. COUMADIN [Concomitant]
     Active Substance: WARFARIN SODIUM
  3. BUMETANIDE (BUMETANIDE) [Concomitant]
     Active Substance: BUMETANIDE
  4. INSPRA [Concomitant]
     Active Substance: EPLERENONE
  5. CRESTOR [Concomitant]
     Active Substance: ROSUVASTATIN CALCIUM
  6. ADCIRCA [Concomitant]
     Active Substance: TADALAFIL
  7. METFORMIN [Concomitant]
     Active Substance: METFORMIN HYDROCHLORIDE
  8. IPRATROPIUM (IPRATROPIUM) [Concomitant]
  9. PLAVIX [Concomitant]
     Active Substance: CLOPIDOGREL BISULFATE
  10. VENTAVIS [Suspect]
     Active Substance: ILOPROST
     Indication: PULMONARY HYPERTENSION
     Route: 055
  11. FUROSEMIDE (FUROSEMIDE) [Concomitant]
     Active Substance: FUROSEMIDE
  12. OPSUMIT [Suspect]
     Active Substance: MACITENTAN
     Indication: PULMONARY HYPERTENSION
     Route: 048
     Dates: start: 20140804, end: 2014

REACTIONS (4)
  - Oedema [None]
  - No therapeutic response [None]
  - Dyspnoea [None]
  - Tremor [None]

NARRATIVE: CASE EVENT DATE: 20141115
